FAERS Safety Report 7525731-6 (Version None)
Quarter: 2011Q2

REPORT INFORMATION
  Report Type: 
  Country: None (occurrence: None)
  Receive Date: 20110606
  Receipt Date: 20110526
  Transmission Date: 20111010
  Serious: Yes (Hospitalization)
  Sender: FDA-Public Use
  Company Number: DE-SANOFI-AVENTIS-2011SA033432

PATIENT
  Age: 62 Year
  Sex: Male
  Weight: 63 kg

DRUGS (4)
  1. XELODA [Suspect]
     Indication: RECTAL CANCER
     Dosage: D1-33 WITHOUT WEEKENDS+OPTIONAL BOOST
     Route: 048
     Dates: start: 20110411, end: 20110502
  2. ELOXATIN [Suspect]
     Indication: RECTAL CANCER
     Route: 042
     Dates: start: 20110411, end: 20110411
  3. ELOXATIN [Suspect]
     Dosage: D1, 8, 15, 22, 29
     Route: 042
     Dates: start: 20110502, end: 20110502
  4. THERAPEUTIC RADIOPHARMACEUTICALS [Suspect]
     Indication: RECTAL CANCER
     Dosage: 1.8 GY PER FRACTION D1-33 WITHOUT WEEKENDS+OPTIONAL BOOST
     Dates: start: 20110411, end: 20110513

REACTIONS (2)
  - ARTHRITIS REACTIVE [None]
  - GASTRIC ULCER [None]
